FAERS Safety Report 4942434-2 (Version None)
Quarter: 2006Q1

REPORT INFORMATION
  Report Type: 
  Country: None (occurrence: None)
  Receive Date: 20060313
  Receipt Date: 20050211
  Transmission Date: 20060701
  Serious: No
  Sender: FDA-Public Use
  Company Number: US-GLAXOSMITHKLINE-A0545200A

PATIENT
  Sex: Male

DRUGS (3)
  1. NICORETTE [Suspect]
  2. NICODERM CQ [Suspect]
  3. COMMIT [Suspect]

REACTIONS (2)
  - APPLICATION SITE VESICLES [None]
  - ORAL MUCOSAL BLISTERING [None]
